FAERS Safety Report 7819870-X (Version None)
Quarter: 2011Q4

REPORT INFORMATION
  Report Type: 
  Country: None (occurrence: None)
  Receive Date: 20111018
  Receipt Date: 20101029
  Transmission Date: 20120403
  Serious: No
  Sender: FDA-Public Use
  Company Number: US-ASTRAZENECA-2010SE51402

PATIENT
  Sex: Male

DRUGS (3)
  1. GLYBURIDE [Concomitant]
  2. SYMBICORT [Suspect]
     Indication: CHRONIC OBSTRUCTIVE PULMONARY DISEASE
     Dosage: 2 PUFFS TWO TIMES A DAY
     Route: 055
     Dates: start: 20100801
  3. SYMBICORT [Suspect]
     Dosage: 1 PUFF TWO TIMES A DAY
     Route: 055

REACTIONS (5)
  - TREMOR [None]
  - NERVOUSNESS [None]
  - LOSS OF CONSCIOUSNESS [None]
  - VISION BLURRED [None]
  - INCORRECT DRUG DOSAGE FORM ADMINISTERED [None]
